FAERS Safety Report 6043432-0 (Version None)
Quarter: 2009Q1

REPORT INFORMATION
  Report Type: 
  Country: None (occurrence: None)
  Receive Date: 20090115
  Receipt Date: 20090115
  Transmission Date: 20090719
  Serious: Yes (Hospitalization, Other)
  Sender: FDA-Public Use
  Company Number: None

PATIENT
  Age: 47 Year
  Sex: Female

DRUGS (5)
  1. FLEXERIL [Suspect]
  2. METHADONE HCL [Concomitant]
  3. XANAX [Concomitant]
  4. ATENOLOL [Concomitant]
  5. PROZAC [Concomitant]

REACTIONS (1)
  - TORSADE DE POINTES [None]
